FAERS Safety Report 24357685 (Version 1)
Quarter: 2024Q3

REPORT INFORMATION
  Report Type: Spontaneous
  Country: US (occurrence: US)
  Receive Date: 20240924
  Receipt Date: 20240924
  Transmission Date: 20241016
  Serious: Yes (Other)
  Sender: PFIZER
  Company Number: US-PFIZER INC-202400260832

PATIENT
  Age: 87 Year
  Sex: Female
  Weight: 79.365 kg

DRUGS (2)
  1. METHYLPREDNISOLONE [Suspect]
     Active Substance: METHYLPREDNISOLONE
     Indication: Arthritis
     Dosage: 4 MG, 2X/DAY
     Dates: start: 20240919
  2. ELIQUIS [Concomitant]
     Active Substance: APIXABAN
     Indication: Anticoagulant therapy
     Dosage: UNK

REACTIONS (4)
  - Transient ischaemic attack [Unknown]
  - Diplopia [Recovered/Resolved]
  - Eye pain [Unknown]
  - Off label use [Unknown]

NARRATIVE: CASE EVENT DATE: 20240919
